FAERS Safety Report 14772917 (Version 2)
Quarter: 2018Q3

REPORT INFORMATION
  Report Type: Spontaneous
  Country: US (occurrence: US)
  Receive Date: 20180418
  Receipt Date: 20180921
  Transmission Date: 20181010
  Serious: No
  Sender: FDA-Public Use
  Company Number: US-PFIZER INC-2016569109

PATIENT
  Age: 76 Year
  Sex: Female
  Weight: 72.2 kg

DRUGS (30)
  1. VENTOLIN HFA [Concomitant]
     Active Substance: ALBUTEROL SULFATE
     Indication: WHEEZING
     Dosage: 216 UG, AS NEEDED (108 (90 BASE) MCG/ACT, INHALE 2 PUFFS EVERY 6 (SIX) HOURS AS NEEDED)
     Route: 055
  2. LIPITOR [Concomitant]
     Active Substance: ATORVASTATIN CALCIUM
     Dosage: 80 MG, 1X/DAY (AT BEDTIME)
     Route: 048
  3. PROLIA [Concomitant]
     Active Substance: DENOSUMAB
     Dosage: 1 ML, UNK, (INJECT 1 ML (60MG TOTAL) UNDER THE SKIN EVERY 6 (SIX) MONTHS)
     Route: 058
  4. NITROLINGUAL [Concomitant]
     Active Substance: NITROGLYCERIN
     Indication: CHEST PAIN
     Dosage: 0.4 MG, AS NEEDED (EVERY 5 (FIVE) MINUTES AS NEEDED)
     Route: 060
  5. FISH OIL [Concomitant]
     Active Substance: FISH OIL
     Dosage: 1000 MG, DAILY
     Route: 048
  6. NASACORT [Concomitant]
     Active Substance: TRIAMCINOLONE ACETONIDE
     Dosage: 220 UG, DAILY (ADMINISTER 2 SPRAYS INTO EACH NOSTRIL DAILY)
     Route: 045
  7. DEXILANT [Concomitant]
     Active Substance: DEXLANSOPRAZOLE
     Dosage: 30 MG, UNK
  8. FLONASE [Concomitant]
     Active Substance: FLUTICASONE PROPIONATE
     Dosage: UNK, (60 MCG/ACT)
     Route: 045
  9. ASPIRIN. [Concomitant]
     Active Substance: ASPIRIN
     Dosage: 81 MG, DAILY
     Route: 048
  10. MELATONIN [Concomitant]
     Active Substance: MELATONIN
     Dosage: UNK
     Route: 048
  11. LIORESAL [Concomitant]
     Active Substance: BACLOFEN
     Indication: MUSCLE SPASMS
     Dosage: 10 MG, AS NEEDED (3 (THREE) TIMES A DAY AS NEEDED)
     Route: 048
  12. OSCAL D [Concomitant]
     Active Substance: CALCIUM CARBONATE\CHOLECALCIFEROL
     Dosage: 1 DF, DAILY [CALCIUM CARBONATE 500 MG]/[ERGOCALCIFEROL 200 UNIT]
     Route: 048
  13. PLAVIX [Concomitant]
     Active Substance: CLOPIDOGREL BISULFATE
     Dosage: 75 MG, DAILY (EVERY DAY)
     Route: 048
  14. IMDUR [Concomitant]
     Active Substance: ISOSORBIDE MONONITRATE
     Dosage: 30 MG, DAILY (EVERY DAY)
     Route: 048
  15. ZYRTEC [Concomitant]
     Active Substance: CETIRIZINE HYDROCHLORIDE
     Dosage: 10 MG, DAILY
     Route: 048
  16. UBIQUINONE [Concomitant]
     Active Substance: UBIDECARENONE
     Dosage: 30 MG, 3X/DAY
     Route: 048
  17. RANEXA [Concomitant]
     Active Substance: RANOLAZINE
     Dosage: 500 MG, 2X/DAY
     Route: 048
  18. DOCUSATE SODIUM. [Concomitant]
     Active Substance: DOCUSATE SODIUM
     Dosage: UNK, 2X/DAY
     Route: 048
  19. SYMBICORT [Concomitant]
     Active Substance: BUDESONIDE\FORMOTEROL FUMARATE DIHYDRATE
     Dosage: 2 DF, 2X/DAY [BUDESONIDE 160MCG]/[FORMOTEROL FUMARATE 4.5MCG]
     Route: 055
  20. LYRICA [Suspect]
     Active Substance: PREGABALIN
     Dosage: 150 MG, 2X/DAY
     Route: 048
  21. VITAMIN B COMPLEX [Concomitant]
     Active Substance: CYANOCOBALAMIN\DEXPANTHENOL\NIACINAMIDE\PYRIDOXINE HYDROCHLORIDE\RIBOFLAVIN 5^-PHOSPHATE SODIUM\THIAMINE HYDROCHLORIDE\VITAMIN B COMPLEX
     Dosage: UNK
     Route: 048
  22. LIDODERM [Concomitant]
     Active Substance: LIDOCAINE
     Dosage: 1 DF, DAILY
     Route: 061
  23. REGLAN [Concomitant]
     Active Substance: METOCLOPRAMIDE HYDROCHLORIDE
     Dosage: UNK, TAKE 1 TABLET BY MOUTH 30 MINUTES BEFORE MEALS AND TAKE 1 TABLET BY MOUTH AT BEDTIME
     Route: 048
  24. EFFIENT [Concomitant]
     Active Substance: PRASUGREL HYDROCHLORIDE
     Dosage: UNK
  25. ROBITUSSIN AC [Concomitant]
     Dosage: UNK
  26. URECHOLINE [Concomitant]
     Active Substance: BETHANECHOL CHLORIDE
     Dosage: 25 MG, 3X/DAY
     Route: 048
  27. ESTRACE [Concomitant]
     Active Substance: ESTRADIOL
     Dosage: UNK, AS NEEDED (DAILY PRN)
  28. NORCO [Concomitant]
     Active Substance: ACETAMINOPHEN\HYDROCODONE BITARTRATE
     Indication: PAIN
     Dosage: 1 DF, AS NEEDED [HYDROCODONE BITARTRATE 10 MG]/[PARACETAMOL 325 MG]
     Route: 048
  29. LEVAQUIN [Concomitant]
     Active Substance: LEVOFLOXACIN
     Dosage: 700 MG, UNK
  30. TAPAZOLE [Concomitant]
     Active Substance: METHIMAZOLE
     Dosage: 10 MG, UNK

REACTIONS (2)
  - Pain in extremity [Unknown]
  - Viral infection [Unknown]
